FAERS Safety Report 9511021 (Version 1)
Quarter: 2013Q3

REPORT INFORMATION
  Report Type: Spontaneous
  Country: US (occurrence: None)
  Receive Date: 20130909
  Receipt Date: 20130909
  Transmission Date: 20140515
  Serious: No
  Sender: FDA-Public Use
  Company Number: None

PATIENT
  Age: 54 Year
  Sex: Female

DRUGS (1)
  1. HUMIRA [Suspect]
     Indication: RHEUMATOID ARTHRITIS
     Dosage: 40.000  EVERY WEEK  SUBQ
     Route: 058
     Dates: start: 20110705

REACTIONS (2)
  - Cellulitis [None]
  - Beta haemolytic streptococcal infection [None]
